FAERS Safety Report 9235945 (Version 1)
Quarter: 2013Q1

REPORT INFORMATION
  Report Type: Spontaneous
  Country: US (occurrence: None)
  Receive Date: 20121031
  Receipt Date: 20121031
  Transmission Date: 20140127
  Serious: Yes (Other)
  Sender: FDA-Public Use
  Company Number: PHEH2012US011782

PATIENT
  Age: 60 Year
  Sex: Female
  Weight: 73.5 kg

DRUGS (6)
  1. GILENYA [Suspect]
     Indication: MULTIPLE SCLEROSIS
     Route: 048
     Dates: start: 20110203, end: 20120312
  2. EFFEXOR [Concomitant]
  3. MORPHINE [Concomitant]
  4. NEURONTIN [Concomitant]
  5. SYNTHROID [Concomitant]
  6. TRAZODONE [Concomitant]

REACTIONS (3)
  - Hepatic enzyme increased [None]
  - Aspartate aminotransferase increased [None]
  - Alanine aminotransferase increased [None]
